FAERS Safety Report 7353156-5 (Version None)
Quarter: 2011Q1

REPORT INFORMATION
  Report Type: 
  Country: None (occurrence: None)
  Receive Date: 20110315
  Receipt Date: 20110228
  Transmission Date: 20110831
  Serious: Yes (Other)
  Sender: FDA-Public Use
  Company Number: US-ALEXION-A201100266

PATIENT
  Sex: Female
  Weight: 82.993 kg

DRUGS (9)
  1. LOVENOX [Concomitant]
     Indication: THROMBOSIS PROPHYLAXIS
     Dosage: UNK, BID
     Route: 058
  2. GLUCOPHAGE [Concomitant]
     Dosage: 500 MG, BID
     Route: 048
  3. MAXZIDE [Concomitant]
     Dosage: 37.5/25 MG, QD
     Route: 048
  4. SOLIRIS [Suspect]
     Dosage: 900 MG, Q2W
     Route: 042
     Dates: start: 20101201, end: 20110217
  5. SOLIRIS [Suspect]
     Indication: PAROXYSMAL NOCTURNAL HAEMOGLOBINURIA
     Dosage: 600 MG, QW
     Route: 042
     Dates: start: 20101108, end: 20101101
  6. ZOCOR [Concomitant]
     Indication: HYPERLIPIDAEMIA
     Dosage: 40 MG, QD
     Route: 048
  7. ATENOLOL [Concomitant]
     Indication: HYPERTENSION
     Dosage: 25 MG, BID
     Route: 048
  8. VASOTEC [Concomitant]
     Dosage: 20 MG, BID
     Route: 048
  9. LANTUS [Concomitant]
     Indication: DIABETES MELLITUS
     Dosage: 50 UG, BID
     Route: 058

REACTIONS (1)
  - NON-HODGKIN'S LYMPHOMA [None]
